FAERS Safety Report 12670751 (Version 2)
Quarter: 2016Q3

REPORT INFORMATION
  Report Type: Spontaneous
  Country: US (occurrence: US)
  Receive Date: 20160822
  Receipt Date: 20160929
  Transmission Date: 20161109
  Serious: No
  Sender: FDA-Public Use
  Company Number: US-JAZZ-2016-US-006016

PATIENT
  Sex: Female

DRUGS (24)
  1. XYREM [Suspect]
     Active Substance: SODIUM OXYBATE
     Indication: NARCOLEPSY
     Dosage: 2.25 G, BID
     Route: 048
     Dates: start: 201512, end: 201512
  2. CALCIUM +D [Concomitant]
     Active Substance: CALCIUM\VITAMIN D
  3. CEVIMELINE HYDROCHLORIDE. [Concomitant]
     Active Substance: CEVIMELINE HYDROCHLORIDE
  4. FLUOXETINE [Concomitant]
     Active Substance: FLUOXETINE HYDROCHLORIDE
  5. REMICADE [Concomitant]
     Active Substance: INFLIXIMAB
  6. VITAMIN D [Concomitant]
     Active Substance: CHOLECALCIFEROL
  7. XYREM [Suspect]
     Active Substance: SODIUM OXYBATE
     Dosage: 3 G, BID
     Route: 048
     Dates: start: 2016
  8. AMERGE [Concomitant]
     Active Substance: NARATRIPTAN HYDROCHLORIDE
  9. FIORICET [Concomitant]
     Active Substance: ACETAMINOPHEN\BUTALBITAL\CAFFEINE
  10. FOLIC ACID. [Concomitant]
     Active Substance: FOLIC ACID
  11. XYREM [Suspect]
     Active Substance: SODIUM OXYBATE
     Dosage: DOSE ADJUSTMENT
     Route: 048
  12. FIORINAL [Concomitant]
     Active Substance: ASPIRIN\BUTALBITAL\CAFFEINE
  13. METHOTREXATE. [Concomitant]
     Active Substance: METHOTREXATE
  14. SKELAXIN [Concomitant]
     Active Substance: METAXALONE
  15. VALTREX [Concomitant]
     Active Substance: VALACYCLOVIR HYDROCHLORIDE
  16. NUVIGIL [Concomitant]
     Active Substance: ARMODAFINIL
  17. RESTASIS [Concomitant]
     Active Substance: CYCLOSPORINE
  18. VAGIFEM [Concomitant]
     Active Substance: ESTRADIOL
  19. NEXIUM [Concomitant]
     Active Substance: ESOMEPRAZOLE MAGNESIUM
  20. PEPCID [Concomitant]
     Active Substance: FAMOTIDINE
  21. XYREM [Suspect]
     Active Substance: SODIUM OXYBATE
     Dosage: 4.5 G, BID
     Route: 048
     Dates: start: 2016
  22. MIDRIN [Concomitant]
     Active Substance: ACETAMINOPHEN\DICHLORALPHENAZONE\ISOMETHEPTENE
  23. SUMATRIPTAN. [Concomitant]
     Active Substance: SUMATRIPTAN
  24. LYRICA [Concomitant]
     Active Substance: PREGABALIN

REACTIONS (3)
  - Weight decreased [Not Recovered/Not Resolved]
  - Tremor [Unknown]
  - Nasopharyngitis [Unknown]
